FAERS Safety Report 20542500 (Version 1)
Quarter: 2022Q1

REPORT INFORMATION
  Report Type: Spontaneous
  Country: NL (occurrence: NL)
  Receive Date: 20220302
  Receipt Date: 20220302
  Transmission Date: 20220423
  Serious: Yes (Life-Threatening, Other)
  Sender: FDA-Public Use
  Company Number: NL-CELLTRION HEALTHCARE HUNGARY KFT-2022NL000310

PATIENT

DRUGS (12)
  1. DOCETAXEL [Suspect]
     Active Substance: DOCETAXEL
     Indication: Metastatic salivary gland cancer
     Dosage: UNK
  2. DOCETAXEL [Suspect]
     Active Substance: DOCETAXEL
     Indication: HER2 positive salivary gland cancer
     Dosage: 75 MILLIGRAM/SQ. METER, Q3W, 75 MG/M2 (6 DOSAGES) EVERY 3 WEEKS
  3. DOCETAXEL [Suspect]
     Active Substance: DOCETAXEL
     Indication: Salivary gland cancer recurrent
     Dosage: UNK
  4. TRASTUZUMAB [Suspect]
     Active Substance: TRASTUZUMAB
     Indication: Salivary gland cancer recurrent
     Dosage: UNK
  5. TRASTUZUMAB [Suspect]
     Active Substance: TRASTUZUMAB
     Indication: HER2 positive salivary gland cancer
     Dosage: UNK, EITHER INTRAVENOUSLY (I.V., STARTING DOSE 8 MG/KG
     Route: 042
  6. TRASTUZUMAB [Suspect]
     Active Substance: TRASTUZUMAB
     Indication: Metastatic salivary gland cancer
     Dosage: UNK
  7. ADO-TRASTUZUMAB EMTANSINE [Suspect]
     Active Substance: ADO-TRASTUZUMAB EMTANSINE
     Indication: HER2 positive salivary gland cancer
     Dosage: 3.6 MILLIGRAM/KILOGRAM, Q3W, 3.6 MG/KG INTRAVENOUSLY, EVERY 3 WEEKS
     Route: 042
  8. ADO-TRASTUZUMAB EMTANSINE [Suspect]
     Active Substance: ADO-TRASTUZUMAB EMTANSINE
     Indication: Salivary gland cancer recurrent
     Dosage: UNK
  9. ADO-TRASTUZUMAB EMTANSINE [Suspect]
     Active Substance: ADO-TRASTUZUMAB EMTANSINE
     Indication: Metastatic salivary gland cancer
     Dosage: UNK
  10. PERTUZUMAB [Suspect]
     Active Substance: PERTUZUMAB
     Indication: HER2 positive salivary gland cancer
     Dosage: 840 MILLIGRAM, Q3W (840 MG (EVERY 3 WEEKS)
     Route: 042
  11. PERTUZUMAB [Suspect]
     Active Substance: PERTUZUMAB
     Indication: Metastatic salivary gland cancer
     Dosage: 420 MILLIGRAM, Q3W, 420 MG SUBSEQUENTLY (EVERY 3 WEEKS)
     Route: 042
  12. PERTUZUMAB [Suspect]
     Active Substance: PERTUZUMAB
     Indication: Salivary gland cancer recurrent
     Dosage: UNK

REACTIONS (23)
  - Aspartate aminotransferase increased [Unknown]
  - Muscle spasms [Unknown]
  - Cardiac failure [Unknown]
  - Nail disorder [Unknown]
  - Dry eye [Unknown]
  - Recall phenomenon [Unknown]
  - Alanine aminotransferase increased [Unknown]
  - Bone pain [Unknown]
  - Alopecia [Unknown]
  - Lymphoedema [Unknown]
  - Weight decreased [Unknown]
  - Myalgia [Unknown]
  - Urinary tract infection [Unknown]
  - Epistaxis [Unknown]
  - Enterocolitis infectious [Unknown]
  - Dyspnoea [Unknown]
  - Conjunctivitis [Unknown]
  - Dermatitis acneiform [Unknown]
  - Skin infection [Unknown]
  - Oedema peripheral [Unknown]
  - Neutrophil count decreased [Unknown]
  - Cough [Unknown]
  - Off label use [Unknown]
